FAERS Safety Report 23339656 (Version 1)
Quarter: 2023Q4

REPORT INFORMATION
  Report Type: Spontaneous
  Country: US (occurrence: US)
  Receive Date: 20231226
  Receipt Date: 20231226
  Transmission Date: 20240110
  Serious: No
  Sender: FDA-Public Use
  Company Number: US-PFIZER INC-202300444286

PATIENT
  Age: 59 Year
  Sex: Female

DRUGS (2)
  1. PAXLOVID [Interacting]
     Active Substance: NIRMATRELVIR\RITONAVIR
     Dosage: UNK
  2. TIZANIDINE [Interacting]
     Active Substance: TIZANIDINE
     Dosage: UNK

REACTIONS (12)
  - Drug interaction [Unknown]
  - Insomnia [Unknown]
  - Hypervigilance [Unknown]
  - Restlessness [Unknown]
  - Abdominal discomfort [Unknown]
  - Diarrhoea [Unknown]
  - Dysgeusia [Unknown]
  - Muscle tightness [Unknown]
  - Headache [Unknown]
  - Illness [Unknown]
  - Pyrexia [Unknown]
  - Oropharyngeal pain [Unknown]
